FAERS Safety Report 16257517 (Version 3)
Quarter: 2019Q3

REPORT INFORMATION
  Report Type: Spontaneous
  Country: US (occurrence: US)
  Receive Date: 20190430
  Receipt Date: 20190716
  Transmission Date: 20191004
  Serious: Yes (Hospitalization, Other)
  Sender: FDA-Public Use
  Company Number: US-PFIZER INC-2019180608

PATIENT
  Age: 86 Year
  Sex: Female
  Weight: 65.76 kg

DRUGS (1)
  1. XELJANZ [Suspect]
     Active Substance: TOFACITINIB CITRATE
     Indication: RHEUMATOID ARTHRITIS
     Dosage: 5 MG, TWICE DAILY (IN MORNING THEN AGAIN WHEN SHE GOES TO BED)
     Route: 048

REACTIONS (8)
  - Skin cancer [Unknown]
  - Insomnia [Unknown]
  - Rash [Not Recovered/Not Resolved]
  - Acne [Not Recovered/Not Resolved]
  - Pain in extremity [Not Recovered/Not Resolved]
  - Musculoskeletal stiffness [Not Recovered/Not Resolved]
  - Visual impairment [Unknown]
  - Arthralgia [Not Recovered/Not Resolved]

NARRATIVE: CASE EVENT DATE: 2018
